FAERS Safety Report 7443268-X (Version None)
Quarter: 2011Q2

REPORT INFORMATION
  Report Type: 
  Country: None (occurrence: None)
  Receive Date: 20110428
  Receipt Date: 20110423
  Transmission Date: 20111010
  Serious: Yes (Other)
  Sender: FDA-Public Use
  Company Number: B0716114A

PATIENT
  Age: 55 Year
  Sex: Male

DRUGS (2)
  1. UNKNOWN [Concomitant]
  2. ZINNAT [Suspect]
     Indication: SINUSITIS

REACTIONS (2)
  - VISION BLURRED [None]
  - VISUAL ACUITY REDUCED [None]
